FAERS Safety Report 19619982 (Version 1)
Quarter: 2021Q3

REPORT INFORMATION
  Report Type: Spontaneous
  Country: US (occurrence: US)
  Receive Date: 20210727
  Receipt Date: 20210727
  Transmission Date: 20211014
  Serious: Yes (Hospitalization)
  Sender: FDA-Public Use
  Company Number: None

PATIENT
  Age: 62 Year
  Sex: Male
  Weight: 141 kg

DRUGS (3)
  1. DEXAMETHASONE 10 MG IV ONCE [Concomitant]
     Dates: start: 20210726, end: 20210726
  2. ALBUTEROL 2.5 MG NEB ONCE [Concomitant]
     Dates: start: 20210726, end: 20210726
  3. CASIRIVIMAB 600 MG + IMDEVIMAB 600 MG [Suspect]
     Active Substance: CASIRIVIMAB\IMDEVIMAB
     Indication: COVID-19
     Dosage: ?          OTHER FREQUENCY:ONCE;?
     Route: 042

REACTIONS (2)
  - Troponin increased [None]
  - Diarrhoea [None]

NARRATIVE: CASE EVENT DATE: 20210726
